FAERS Safety Report 23473382 (Version 1)
Quarter: 2024Q1

REPORT INFORMATION
  Report Type: Spontaneous
  Country: JP (occurrence: JP)
  Receive Date: 20240203
  Receipt Date: 20240203
  Transmission Date: 20240409
  Serious: Yes (Other)
  Sender: FDA-Public Use
  Company Number: JP-TEVA-VS-3152262

PATIENT
  Age: 72 Year
  Sex: Female

DRUGS (1)
  1. AZILECT [Suspect]
     Active Substance: RASAGILINE MESYLATE
     Indication: Parkinson^s disease
     Route: 048
     Dates: start: 202002, end: 20201027

REACTIONS (6)
  - Breast cancer [Unknown]
  - Neuropathy peripheral [Unknown]
  - Dementia [Unknown]
  - Osteoarthritis [Unknown]
  - Cardiac disorder [Unknown]
  - Back pain [Unknown]
